FAERS Safety Report 8003788-6 (Version None)
Quarter: 2011Q4

REPORT INFORMATION
  Report Type: 
  Country: None (occurrence: None)
  Receive Date: 20111222
  Receipt Date: 20111215
  Transmission Date: 20120403
  Serious: Yes (Other)
  Sender: FDA-Public Use
  Company Number: DE-TEVA-313675GER

PATIENT
  Age: 62 Year
  Sex: Female
  Weight: 62 kg

DRUGS (2)
  1. CARBOPLATIN [Suspect]
     Indication: SMALL CELL LUNG CANCER STAGE UNSPECIFIED
     Route: 042
     Dates: start: 20110610
  2. ETOPOSIDE [Suspect]
     Indication: SMALL CELL LUNG CANCER STAGE UNSPECIFIED
     Route: 042
     Dates: start: 20110610, end: 20110612

REACTIONS (1)
  - ALVEOLITIS [None]
